FAERS Safety Report 19926336 (Version 3)
Quarter: 2021Q4

REPORT INFORMATION
  Report Type: Report from Study
  Country: BR (occurrence: BR)
  Receive Date: 20211007
  Receipt Date: 20211029
  Transmission Date: 20220304
  Serious: Yes (Other)
  Sender: FDA-Public Use
  Company Number: NVSC2021BR223665

PATIENT
  Sex: Female
  Weight: 75 kg

DRUGS (6)
  1. COSENTYX [Suspect]
     Active Substance: SECUKINUMAB
     Indication: Psoriatic arthropathy
     Dosage: 300 MG, QW (TWO PENS OF 150 MG) WEEKLY (ATTACK DOSES FOR 5 WEEKS)
     Route: 058
     Dates: start: 20210802, end: 20210830
  2. COSENTYX [Suspect]
     Active Substance: SECUKINUMAB
     Dosage: 300 MG, Q4W (TWO PENS OF 150 MG)
     Route: 058
     Dates: start: 202109
  3. SUSTRATE [Concomitant]
     Active Substance: PROPATYL NITRATE
     Indication: Arrhythmia
     Dosage: 2 DF, QD (STARTED: ABOUT 8 YEARS AGO)
     Route: 048
  4. HYDROCHLOROTHIAZIDE [Concomitant]
     Active Substance: HYDROCHLOROTHIAZIDE
     Indication: Hypertension
     Dosage: 2 DF, QD (STARTED: ABOUT 8 YEARS AGO)
     Route: 048
  5. PROPRANOLOL HYDROCHLORIDE [Concomitant]
     Active Substance: PROPRANOLOL HYDROCHLORIDE
     Indication: Hypertension
     Dosage: 2 DF, QD (STARTED: ABOUT 8 YEARS AGO)
     Route: 048
  6. EUTHYROX [Concomitant]
     Active Substance: LEVOTHYROXINE SODIUM
     Indication: Thyroid disorder
     Dosage: 1 DF, QD (STARTED: ABOUT 8 YARS AGO)
     Route: 048

REACTIONS (12)
  - Psoriatic arthropathy [Recovering/Resolving]
  - Bone disorder [Recovering/Resolving]
  - Back pain [Recovering/Resolving]
  - Movement disorder [Recovering/Resolving]
  - Pain [Recovering/Resolving]
  - Peripheral swelling [Recovering/Resolving]
  - Bone pain [Recovering/Resolving]
  - Arthralgia [Recovering/Resolving]
  - Discharge [Recovering/Resolving]
  - Central nervous system lesion [Unknown]
  - Psoriasis [Recovering/Resolving]
  - Erythema [Recovered/Resolved]
